FAERS Safety Report 7795038-0 (Version None)
Quarter: 2011Q4

REPORT INFORMATION
  Report Type: 
  Country: None (occurrence: None)
  Receive Date: 20111004
  Receipt Date: 20110922
  Transmission Date: 20120403
  Serious: Yes (Hospitalization)
  Sender: FDA-Public Use
  Company Number: JP-JNJFOC-20110910466

PATIENT
  Age: 66 Year
  Sex: Female
  Weight: 35 kg

DRUGS (10)
  1. SOLU-MEDROL [Suspect]
     Indication: COLITIS ULCERATIVE
     Route: 042
     Dates: start: 20110212, end: 20110214
  2. REMICADE [Suspect]
     Indication: COLITIS ULCERATIVE
     Route: 042
     Dates: start: 20110214
  3. IMURAN [Suspect]
     Indication: COLITIS ULCERATIVE
     Route: 048
     Dates: start: 20110101
  4. GANCICLOVIR [Concomitant]
     Indication: ARTHRITIS
     Dates: start: 20110221
  5. ENTERONON-R [Concomitant]
     Indication: COLITIS ULCERATIVE
     Route: 048
  6. CODEINE PHOSPHATE HEMIHYDRATE [Concomitant]
     Indication: COLITIS ULCERATIVE
     Route: 048
  7. THIATON [Concomitant]
     Indication: COLITIS ULCERATIVE
     Route: 048
  8. LOPERAMIDE HCL [Concomitant]
     Indication: COLITIS ULCERATIVE
     Route: 048
  9. FLURBIPROFEN [Concomitant]
     Indication: ARTHRITIS
     Dosage: AS NECESSARY
     Route: 042
     Dates: start: 20110218, end: 20110228
  10. ASACOL [Concomitant]
     Indication: COLITIS ULCERATIVE
     Route: 048

REACTIONS (2)
  - PYREXIA [None]
  - CYTOMEGALOVIRUS INFECTION [None]
